FAERS Safety Report 8319235-0 (Version None)
Quarter: 2012Q2

REPORT INFORMATION
  Report Type: 
  Country: None (occurrence: None)
  Receive Date: 20120427
  Receipt Date: 20120416
  Transmission Date: 20120825
  Serious: Yes (Other)
  Sender: FDA-Public Use
  Company Number: US-JNJFOC-20120408559

PATIENT
  Age: 9 Month
  Sex: Female
  Weight: 7.26 kg

DRUGS (1)
  1. DESITIN MAXIMUM STRENGTH ORIGINAL PASTE [Suspect]
     Indication: DERMATITIS DIAPER
     Dosage: SMALL AMOUNT
     Route: 061
     Dates: start: 20120413, end: 20120413

REACTIONS (3)
  - VULVOVAGINAL SWELLING [None]
  - APPLICATION SITE INFLAMMATION [None]
  - APPLICATION SITE SWELLING [None]
